FAERS Safety Report 5794894-5 (Version None)
Quarter: 2008Q2

REPORT INFORMATION
  Report Type: 
  Country: None (occurrence: None)
  Receive Date: 20080630
  Receipt Date: 20080620
  Transmission Date: 20081010
  Serious: Yes (Hospitalization)
  Sender: FDA-Public Use
  Company Number: RU-ABBOTT-08P-251-0458959-00

PATIENT
  Age: 55 Year
  Sex: Female

DRUGS (2)
  1. TARKA [Suspect]
     Indication: HYPERTENSION
     Dosage: 180MG/2MG ONCE DAILY
     Route: 048
     Dates: start: 20080401
  2. KARDIOMAGNIL (ACETYLSALICYLIC ACID + MAGNESIUM DIOXIDE) [Concomitant]
     Indication: DRUG USE FOR UNKNOWN INDICATION
     Route: 048

REACTIONS (1)
  - SUBARACHNOID HAEMORRHAGE [None]
